FAERS Safety Report 24329247 (Version 2)
Quarter: 2024Q3

REPORT INFORMATION
  Report Type: Spontaneous
  Country: US (occurrence: US)
  Receive Date: 20240917
  Receipt Date: 20240926
  Transmission Date: 20241016
  Serious: Yes (Death, Hospitalization)
  Sender: EISAI
  Company Number: US-Eisai-EC-2024-174373

PATIENT
  Age: 69 Year
  Sex: Female
  Weight: 86 kg

DRUGS (3)
  1. LEQEMBI [Suspect]
     Active Substance: LECANEMAB-IRMB
     Indication: Dementia Alzheimer^s type
     Route: 041
     Dates: start: 20240529, end: 202406
  2. LEQEMBI [Suspect]
     Active Substance: LECANEMAB-IRMB
     Indication: Cognitive disorder
     Route: 041
     Dates: start: 20240710, end: 20240710
  3. ASPIRIN [Concomitant]
     Active Substance: ASPIRIN
     Indication: Antiplatelet therapy
     Dosage: DOSE AND FREQUENCY UNKNOWN
     Route: 065

REACTIONS (2)
  - Cerebral haemorrhage [Fatal]
  - Amyloid related imaging abnormality-oedema/effusion [Unknown]

NARRATIVE: CASE EVENT DATE: 20240722
